FAERS Safety Report 17520036 (Version 1)
Quarter: 2020Q1

REPORT INFORMATION
  Report Type: Spontaneous
  Country: US (occurrence: US)
  Receive Date: 20200309
  Receipt Date: 20200309
  Transmission Date: 20200409
  Serious: Yes (Other)
  Sender: FDA-Public Use
  Company Number: None

PATIENT

DRUGS (1)
  1. NULEAF NATURALS FULL SPECTRUM CBD OIL [Suspect]
     Active Substance: CANNABIDIOL\HERBALS

REACTIONS (3)
  - Malaise [None]
  - Urticaria [None]
  - Rash [None]
